FAERS Safety Report 5761119-6 (Version None)
Quarter: 2008Q2

REPORT INFORMATION
  Report Type: 
  Country: None (occurrence: None)
  Receive Date: 20080606
  Receipt Date: 20080529
  Transmission Date: 20081010
  Serious: Yes (Hospitalization, Disabling, Other)
  Sender: FDA-Public Use
  Company Number: DE-BAYER-200818660GPV

PATIENT
  Age: 46 Year
  Sex: Male
  Weight: 79 kg

DRUGS (1)
  1. LEVITRA [Suspect]
     Indication: PROSTATECTOMY
     Route: 048
     Dates: start: 20070815, end: 20070821

REACTIONS (5)
  - BLINDNESS UNILATERAL [None]
  - HEAD DISCOMFORT [None]
  - HEADACHE [None]
  - OPTIC NERVE INFARCTION [None]
  - VISUAL DISTURBANCE [None]
